FAERS Safety Report 8446646-5 (Version None)
Quarter: 2012Q2

REPORT INFORMATION
  Report Type: 
  Country: None (occurrence: None)
  Receive Date: 20120619
  Receipt Date: 20120612
  Transmission Date: 20120825
  Serious: No
  Sender: FDA-Public Use
  Company Number: US-BIOGENIDEC-2012BI012179

PATIENT
  Age: 49 Year
  Sex: Female

DRUGS (1)
  1. TYSABRI [Suspect]
     Indication: MULTIPLE SCLEROSIS
     Route: 042
     Dates: start: 20120223, end: 20120406

REACTIONS (6)
  - AGITATION [None]
  - APHASIA [None]
  - ANXIETY [None]
  - URTICARIA [None]
  - PRURITUS [None]
  - HYPERSENSITIVITY [None]
